FAERS Safety Report 23964830 (Version 2)
Quarter: 2025Q2

REPORT INFORMATION
  Report Type: Spontaneous
  Country: US (occurrence: US)
  Receive Date: 20240612
  Receipt Date: 20250530
  Transmission Date: 20250716
  Serious: Yes (Other)
  Sender: CIPLA
  Company Number: US-CIPLA LTD.-2024US05683

PATIENT

DRUGS (1)
  1. ALBUTEROL [Suspect]
     Active Substance: ALBUTEROL
     Indication: Seasonal allergy
     Route: 065

REACTIONS (5)
  - Choking [Unknown]
  - Seasonal allergy [Unknown]
  - Device delivery system issue [Unknown]
  - Device occlusion [Unknown]
  - Product quality issue [Unknown]
